FAERS Safety Report 24166861 (Version 1)
Quarter: 2024Q3

REPORT INFORMATION
  Report Type: Spontaneous
  Country: GR (occurrence: GR)
  Receive Date: 20240802
  Receipt Date: 20240802
  Transmission Date: 20241017
  Serious: Yes (Other)
  Sender: MYLAN
  Company Number: None

PATIENT
  Age: 74 Year
  Sex: Male
  Weight: 90 kg

DRUGS (3)
  1. LIPITOR [Suspect]
     Active Substance: ATORVASTATIN CALCIUM
     Indication: Product used for unknown indication
     Dosage: 40 MILLIGRAM (40 MG/TAB)
     Route: 048
  2. CRESTOR [Suspect]
     Active Substance: ROSUVASTATIN CALCIUM
     Indication: Product used for unknown indication
     Dosage: 20 MILLIGRAM (20MG/TAB)
     Route: 048
  3. PRAVACHOL [Suspect]
     Active Substance: PRAVASTATIN SODIUM
     Indication: Product used for unknown indication
     Dosage: 40 MILLIGRAM (40MG/TAB  )
     Route: 065

REACTIONS (1)
  - Gastrointestinal disorder [Recovered/Resolved]
